FAERS Safety Report 23922672 (Version 1)
Quarter: 2024Q2

REPORT INFORMATION
  Report Type: Spontaneous
  Country: GB (occurrence: GB)
  Receive Date: 20240531
  Receipt Date: 20240531
  Transmission Date: 20240716
  Serious: Yes (Other)
  Sender: FDA-Public Use
  Company Number: None

PATIENT
  Age: 73 Year
  Sex: Female
  Weight: 39.2 kg

DRUGS (4)
  1. LEVOFLOXACIN [Suspect]
     Active Substance: LEVOFLOXACIN
     Dosage: **RESCUE ANTIBIOTIC**, DURATION: 5 DAYS
     Route: 065
     Dates: start: 20240327, end: 20240331
  2. PREDNISOLONE [Concomitant]
     Active Substance: PREDNISOLONE
     Dosage: DURATION: 5 DAYS
     Dates: start: 20240207
  3. ALBUTEROL [Concomitant]
     Active Substance: ALBUTEROL
     Dosage: TIME INTERVAL: AS NECESSARY: DURATION: 43 DAYS
     Dates: start: 20240213, end: 20240327
  4. ACETAMINOPHEN [Concomitant]
     Active Substance: ACETAMINOPHEN
     Indication: Generalised anxiety disorder
     Dosage: TIME INTERVAL: AS NECESSARY: ONE TO BE TAKEN EVERY 4-6 HOURS UP TO FOUR TIMES A DAY AS REQUIRED
     Dates: start: 20240327

REACTIONS (1)
  - Arthralgia [Recovering/Resolving]

NARRATIVE: CASE EVENT DATE: 20240329
